FAERS Safety Report 7074289-7 (Version None)
Quarter: 2010Q4

REPORT INFORMATION
  Report Type: 
  Country: None (occurrence: None)
  Receive Date: 20101029
  Receipt Date: 20101025
  Transmission Date: 20110411
  Serious: Yes (Other)
  Sender: FDA-Public Use
  Company Number: FR-MERCK-1010FRA00081

PATIENT
  Age: 35 Year
  Sex: Female

DRUGS (2)
  1. JANUVIA [Suspect]
     Indication: TYPE 1 DIABETES MELLITUS
     Route: 048
     Dates: end: 20091019
  2. METFORMIN HYDROCHLORIDE AND PIOGLITAZONE HYDROCHLORIDE [Suspect]
     Indication: TYPE 1 DIABETES MELLITUS
     Route: 048
     Dates: end: 20091019

REACTIONS (3)
  - ABORTION INDUCED [None]
  - DRUG EXPOSURE DURING PREGNANCY [None]
  - OFF LABEL USE [None]
